FAERS Safety Report 22528982 (Version 4)
Quarter: 2024Q1

REPORT INFORMATION
  Report Type: Spontaneous
  Country: JP (occurrence: JP)
  Receive Date: 20230607
  Receipt Date: 20240104
  Transmission Date: 20240410
  Serious: Yes (Other)
  Sender: FDA-Public Use
  Company Number: JP-MSD-2305JPN003617J

PATIENT
  Age: 58 Year
  Sex: Male

DRUGS (1)
  1. KEYTRUDA [Suspect]
     Active Substance: PEMBROLIZUMAB
     Indication: Tongue neoplasm malignant stage unspecified
     Dosage: UNK
     Route: 041

REACTIONS (3)
  - Immune-mediated enterocolitis [Unknown]
  - Immune-mediated hepatic disorder [Unknown]
  - Primary adrenal insufficiency [Recovering/Resolving]
